FAERS Safety Report 9394918 (Version 2)
Quarter: 2013Q3

REPORT INFORMATION
  Report Type: Spontaneous
  Country: US (occurrence: US)
  Receive Date: 20130711
  Receipt Date: 20130910
  Transmission Date: 20140515
  Serious: Yes (Other)
  Sender: FDA-Public Use
  Company Number: US-PFIZER INC-2013201342

PATIENT
  Age: 49 Year
  Sex: Female

DRUGS (4)
  1. XELJANZ [Suspect]
     Indication: RHEUMATOID ARTHRITIS
     Dosage: 5 MG, 2X/DAY
     Route: 048
     Dates: start: 201301
  2. XELJANZ [Suspect]
     Dosage: UNK
  3. XELJANZ [Suspect]
     Dosage: UNK
  4. LORTAB [Concomitant]
     Dosage: 10-500 MG

REACTIONS (7)
  - Balance disorder [Unknown]
  - Gait disturbance [Unknown]
  - Fall [Unknown]
  - Pain in extremity [Unknown]
  - Visual impairment [Unknown]
  - Asthenia [Unknown]
  - Synovial cyst [Unknown]
